FAERS Safety Report 4768718-9 (Version None)
Quarter: 2005Q3

REPORT INFORMATION
  Report Type: 
  Country: None (occurrence: None)
  Receive Date: 20050914
  Receipt Date: 20050905
  Transmission Date: 20060218
  Serious: Yes (Other)
  Sender: FDA-Public Use
  Company Number: BR-GLAXOSMITHKLINE-A0573682A

PATIENT
  Age: 62 Year
  Sex: Female
  Weight: 90 kg

DRUGS (2)
  1. FLIXONASE [Suspect]
     Indication: SINUSITIS
     Dosage: 50MCG PER DAY
     Dates: start: 20050527, end: 20050530
  2. PROPRANOLOL [Concomitant]
     Dosage: 2TAB THREE TIMES PER DAY
     Route: 048
     Dates: start: 19910905

REACTIONS (11)
  - DEPRESSION [None]
  - DRY MOUTH [None]
  - HYPERTENSION [None]
  - NASAL CONGESTION [None]
  - NASAL SEPTUM DEVIATION [None]
  - NEOPLASM MALIGNANT [None]
  - PAIN [None]
  - PALATAL DISORDER [None]
  - PHARYNGITIS [None]
  - POLYP [None]
  - STOMATITIS [None]
